FAERS Safety Report 6054293-8 (Version None)
Quarter: 2009Q1

REPORT INFORMATION
  Report Type: 
  Country: None (occurrence: None)
  Receive Date: 20090127
  Receipt Date: 20090112
  Transmission Date: 20090719
  Serious: Yes (Other)
  Sender: FDA-Public Use
  Company Number: GB-GENENTECH-275949

PATIENT
  Age: 31 Year
  Sex: Female

DRUGS (7)
  1. MABTHERA [Suspect]
     Indication: POLYMYOSITIS
     Dosage: 1 G, UNK
     Route: 042
  2. METHYLPREDNISOLONE [Suspect]
     Indication: POLYMYOSITIS
     Dosage: 100 MG, UNK
  3. PREDNISOLONE [Suspect]
     Indication: POLYMYOSITIS
     Dosage: 30 MG, UNK
  4. PREDNISOLONE [Suspect]
     Dosage: 20 MG, UNK
  5. PREDNISOLONE [Suspect]
     Dosage: 10 MG, UNK
  6. AZATHIOPRINE [Concomitant]
     Indication: DRUG USE FOR UNKNOWN INDICATION
     Dosage: 150 MG, UNK
  7. METHOTREXATE [Concomitant]
     Indication: DRUG USE FOR UNKNOWN INDICATION
     Dosage: 10 MG, UNK

REACTIONS (1)
  - MUSCULAR DYSTROPHY [None]
